FAERS Safety Report 8845368 (Version 2)
Quarter: 2013Q2

REPORT INFORMATION
  Report Type: Spontaneous
  Country: US (occurrence: None)
  Receive Date: 20120426
  Receipt Date: 20121031
  Transmission Date: 20140414
  Serious: No
  Sender: FDA-Public Use
  Company Number: PHEH2011US011742

PATIENT
  Age: 58 Year
  Sex: Male
  Weight: 111.1 kg

DRUGS (5)
  1. GILENYA [Suspect]
  2. SIMVASTATIN (SIMVASTATIN) [Concomitant]
  3. FAMPRIDINE (FAMPRIDINE) [Concomitant]
  4. LUNESTA (ESZOPICLONE) [Concomitant]
  5. PROVIGIL (MODAFINIL) [Concomitant]

REACTIONS (6)
  - Upper respiratory tract infection [None]
  - Nasopharyngitis [None]
  - Memory impairment [None]
  - Muscle spasticity [None]
  - Fatigue [None]
  - Vision blurred [None]
